FAERS Safety Report 4920073-7 (Version None)
Quarter: 2006Q1

REPORT INFORMATION
  Report Type: 
  Country: None (occurrence: None)
  Receive Date: 20060217
  Receipt Date: 20060209
  Transmission Date: 20060701
  Serious: Yes (Death, Hospitalization, Other)
  Sender: FDA-Public Use
  Company Number: 2006020488

PATIENT
  Age: 44 Year
  Sex: Male
  Weight: 54.4316 kg

DRUGS (3)
  1. ZYRTEC [Suspect]
     Indication: DRUG THERAPY
     Dosage: (10 MG), ORAL
     Route: 048
     Dates: end: 20060129
  2. RANAGEL (SEVELAMER HYDROCHLORIDE) [Concomitant]
  3. ALL THERAPEUTIC PRODUCTS(ALL THERAPEUTIC PRODUCTS) [Concomitant]

REACTIONS (2)
  - BRAIN DEATH [None]
  - CARDIO-RESPIRATORY ARREST [None]
